FAERS Safety Report 9755402 (Version 1)
Quarter: 2013Q4

REPORT INFORMATION
  Report Type: Spontaneous
  Country: US (occurrence: US)
  Receive Date: 20131213
  Receipt Date: 20131213
  Transmission Date: 20140711
  Serious: No
  Sender: FDA-Public Use
  Company Number: US-GLAXOSMITHKLINE-A1017572A

PATIENT
  Sex: Female

DRUGS (1)
  1. NICODERM [Suspect]
     Route: 062
     Dates: end: 201302

REACTIONS (2)
  - Salivary gland disorder [Unknown]
  - Pharyngeal disorder [Unknown]
